FAERS Safety Report 14720361 (Version 2)
Quarter: 2018Q2

REPORT INFORMATION
  Report Type: Spontaneous
  Country: FR (occurrence: FR)
  Receive Date: 20180405
  Receipt Date: 20180611
  Transmission Date: 20180711
  Serious: Yes (Hospitalization)
  Sender: FDA-Public Use
  Company Number: FR-ROCHE-2101672

PATIENT
  Age: 74 Year
  Sex: Male

DRUGS (2)
  1. ROACTEMRA [Suspect]
     Active Substance: TOCILIZUMAB
     Indication: POLYMYALGIA RHEUMATICA
     Dosage: 1 INJECTION MENSUELLE
     Route: 042
     Dates: start: 20170406, end: 20170725
  2. ROACTEMRA [Suspect]
     Active Substance: TOCILIZUMAB
     Dosage: 1 INJECTION MENSUELLE
     Route: 042
     Dates: start: 20180123, end: 20180123

REACTIONS (1)
  - Thrombophlebitis [Recovered/Resolved]

NARRATIVE: CASE EVENT DATE: 20180205
